FAERS Safety Report 25751718 (Version 1)
Quarter: 2025Q3

REPORT INFORMATION
  Report Type: Spontaneous
  Country: US (occurrence: None)
  Receive Date: 20250901
  Receipt Date: 20250901
  Transmission Date: 20251021
  Serious: Yes (Hospitalization)
  Sender: FDA-CTU
  Company Number: None

PATIENT
  Age: 38 Year
  Sex: Female
  Weight: 48.6 kg

DRUGS (5)
  1. BOTOX [Suspect]
     Active Substance: ONABOTULINUMTOXINA
     Indication: Facial cosmetic procedure
     Route: 050
     Dates: start: 20250822, end: 20250822
  2. COPPER [Concomitant]
     Active Substance: COPPER
  3. PROBIOTICS NOS [Concomitant]
     Active Substance: PROBIOTICS NOS
  4. lions mane [Concomitant]
  5. CLARITIN [Concomitant]
     Active Substance: LORATADINE

REACTIONS (29)
  - Botulism [None]
  - Toxicity to various agents [None]
  - Panic reaction [None]
  - Anxiety [None]
  - Dyspnoea [None]
  - Dysphagia [None]
  - Paraesthesia [None]
  - Tremor [None]
  - Tremor [None]
  - Excessive eye blinking [None]
  - Muscle twitching [None]
  - Nausea [None]
  - Insomnia [None]
  - Dry mouth [None]
  - Dry eye [None]
  - Lacrimal disorder [None]
  - Tinnitus [None]
  - Ear pain [None]
  - Back pain [None]
  - Gait inability [None]
  - Chest discomfort [None]
  - Chest pain [None]
  - Infrequent bowel movements [None]
  - Muscular weakness [None]
  - Brain fog [None]
  - Hypoaesthesia [None]
  - Throat tightness [None]
  - Vertigo [None]
  - Speech disorder [None]

NARRATIVE: CASE EVENT DATE: 20250822
